FAERS Safety Report 8594420-1 (Version None)
Quarter: 2012Q3

REPORT INFORMATION
  Report Type: 
  Country: None (occurrence: None)
  Receive Date: 20120815
  Receipt Date: 20120807
  Transmission Date: 20120928
  Serious: No
  Sender: FDA-Public Use
  Company Number: US-BIOGENIDEC-2012BI029978

PATIENT
  Sex: Female

DRUGS (3)
  1. AVONEX [Suspect]
     Route: 030
     Dates: start: 20120803
  2. AVONEX [Suspect]
     Route: 030
     Dates: start: 20030101, end: 20120727
  3. AVONEX [Suspect]
     Indication: MULTIPLE SCLEROSIS
     Route: 030
     Dates: start: 20011227, end: 20030101

REACTIONS (6)
  - INFLUENZA LIKE ILLNESS [None]
  - VITREOUS FLOATERS [None]
  - MUSCLE ATROPHY [None]
  - INJECTION SITE HAEMORRHAGE [None]
  - HERPES ZOSTER [None]
  - MUSCLE SPASMS [None]
